FAERS Safety Report 9717999 (Version 1)
Quarter: 2013Q4

REPORT INFORMATION
  Report Type: Spontaneous
  Country: US (occurrence: US)
  Receive Date: 20131127
  Receipt Date: 20131127
  Transmission Date: 20140711
  Serious: Yes (Hospitalization, Other)
  Sender: FDA-Public Use
  Company Number: US-SA-2013SA123109

PATIENT
  Age: 67 Year
  Sex: Female

DRUGS (3)
  1. LANTUS SOLOSTAR [Suspect]
     Dosage: TAKEN FROM: A FEW YEARS.?DOSE: 40/36 UNITS TWICE A DAY.?DAILY DOSE: 80/72 UNITS.
     Route: 051
  2. SOLOSTAR [Concomitant]
  3. NOVOLOG [Concomitant]

REACTIONS (9)
  - Hepatic cirrhosis [Unknown]
  - Ammonia increased [Unknown]
  - Blood potassium increased [Unknown]
  - Dyspnoea [Unknown]
  - Mobility decreased [Unknown]
  - Weight increased [Unknown]
  - Thyroid disorder [Unknown]
  - Cardiac disorder [Unknown]
  - Insomnia [Unknown]
